FAERS Safety Report 5477558-7 (Version None)
Quarter: 2007Q4

REPORT INFORMATION
  Report Type: 
  Country: None (occurrence: None)
  Receive Date: 20071002
  Receipt Date: 20070919
  Transmission Date: 20080405
  Serious: Yes (Hospitalization)
  Sender: FDA-Public Use
  Company Number: CERZ-11894

PATIENT
  Age: 2 Year
  Sex: Male
  Weight: 9 kg

DRUGS (2)
  1. CEREZYME [Suspect]
     Indication: GAUCHER'S DISEASE
     Dosage: 1000 UNITS IV
     Route: 042
     Dates: start: 20070821
  2. CARBAMAZEPINE [Concomitant]

REACTIONS (5)
  - ASPIRATION [None]
  - CONVULSION [None]
  - DISEASE PROGRESSION [None]
  - DYSPNOEA [None]
  - GAUCHER'S DISEASE [None]
